FAERS Safety Report 26116386 (Version 1)
Quarter: 2025Q4

REPORT INFORMATION
  Report Type: Report from Study
  Country: SA (occurrence: SA)
  Receive Date: 20251203
  Receipt Date: 20251203
  Transmission Date: 20260118
  Serious: Yes (Death, Other)
  Sender: ROCHE
  Company Number: SA-CHEPLA-2025013527

PATIENT
  Age: 42 Year
  Sex: Male

DRUGS (1)
  1. VALGANCICLOVIR [Suspect]
     Active Substance: VALGANCICLOVIR
     Indication: Cytomegalovirus infection
     Dosage: TWICE DAILY
     Route: 065

REACTIONS (3)
  - Pneumonia [Fatal]
  - Hepatic angiosarcoma [Unknown]
  - Off label use [Unknown]
